FAERS Safety Report 25534811 (Version 1)
Quarter: 2025Q3

REPORT INFORMATION
  Report Type: Spontaneous
  Country: CN (occurrence: CN)
  Receive Date: 20250709
  Receipt Date: 20250709
  Transmission Date: 20251021
  Serious: Yes (Hospitalization)
  Sender: PFIZER
  Company Number: CN-PFIZER INC-PV202500081299

PATIENT
  Age: 81 Year
  Sex: Female
  Weight: 55 kg

DRUGS (2)
  1. TIGECYCLINE [Suspect]
     Active Substance: TIGECYCLINE
     Indication: Infection
     Dosage: 50 MG, 2X/DAY
     Route: 041
     Dates: start: 20250626, end: 20250704
  2. TIGECYCLINE [Suspect]
     Active Substance: TIGECYCLINE
     Dosage: 25 MG, 2X/DAY
     Dates: start: 20250704

REACTIONS (2)
  - Blood bilirubin increased [Unknown]
  - Drug level increased [Unknown]

NARRATIVE: CASE EVENT DATE: 20250703
